FAERS Safety Report 13577357 (Version 1)
Quarter: 2017Q2

REPORT INFORMATION
  Report Type: Spontaneous
  Country: JP (occurrence: JP)
  Receive Date: 20170524
  Receipt Date: 20170524
  Transmission Date: 20170830
  Serious: Yes (Death)
  Sender: FDA-Public Use
  Company Number: JP-ASTELLAS-2017US020566

PATIENT
  Age: 87 Year
  Sex: Female

DRUGS (1)
  1. AMBISOME [Suspect]
     Active Substance: AMPHOTERICIN B
     Indication: FUNGAL SEPSIS
     Dosage: UNK, UNKNOWN FREQ.
     Route: 065

REACTIONS (1)
  - Gastrointestinal disorder [Fatal]
